FAERS Safety Report 9555961 (Version 1)
Quarter: 2013Q3

REPORT INFORMATION
  Report Type: Other
  Country: GB (occurrence: GB)
  Receive Date: 20130926
  Receipt Date: 20130926
  Transmission Date: 20140515
  Serious: Yes (Death)
  Sender: FDA-Public Use
  Company Number: GB-SUN PHARMACEUTICAL INDUSTRIES LTD-2013SUN04738

PATIENT
  Age: 67 Year
  Sex: Male

DRUGS (26)
  1. OXALIPLATIN 5 MG/ML, CONCENTRATE FOR SOLUTION FOR INFUSION [Suspect]
     Indication: COLON CANCER
     Dosage: 165 MG, ONCE PER 2 WEEKS
     Route: 042
     Dates: start: 20130212
  2. FLUOROURACIL [Suspect]
     Indication: COLON CANCER
     Dosage: ONCE PER 2 WEEKS
     Route: 042
     Dates: start: 20130212, end: 20130702
  3. ALUMINIUM [Concomitant]
     Dosage: UNK
     Dates: start: 20130301
  4. BEVACIZUMAB [Concomitant]
     Indication: COLON CANCER
     Dosage: 355 MG, ONCE PER 2 WEEKS
     Route: 042
     Dates: start: 20130212
  5. BIOTENE DRY MOUTH [Concomitant]
  6. CALCIUM FOLINATE [Concomitant]
     Indication: COLON CANCER
     Dosage: 50 MG, ONCE PER 2 WEEKS
     Route: 042
     Dates: start: 20130212
  7. CALCIUM FOLINATE [Concomitant]
     Dosage: UNK
  8. CHLORHEXIDINE [Concomitant]
  9. COLECALCIFEROL [Concomitant]
     Dosage: 1 UNK, UNK
     Dates: start: 201209
  10. COLOXYL [Concomitant]
     Dosage: 2 DF, BID
     Dates: start: 20130301
  11. DEXAMETHASONE [Concomitant]
     Dosage: 5 MG, ONCE PER 2 WEEKS
     Dates: start: 20130703, end: 20130707
  12. DEXAMETHASONE [Concomitant]
     Dosage: UNK
     Dates: start: 20130708
  13. DEXAMETHASONE [Concomitant]
     Dosage: UNK
     Dates: start: 20130212
  14. DEXAMETHASONE [Concomitant]
     Dosage: UNK
     Dates: start: 20130515, end: 20130702
  15. DUROGESIC DTRANS [Concomitant]
     Dosage: 300 MG, UNK
     Dates: start: 20130212
  16. ESOMEPRAZOLE MAGNESIUM [Concomitant]
     Dosage: 20 MG, OD
     Dates: start: 201108
  17. FLUCONAZOLE [Concomitant]
     Dosage: 1 DF, UNK
     Route: 048
     Dates: start: 20130617
  18. MAGNESIUM HYDROXIDE [Concomitant]
  19. NYSTATIN [Concomitant]
     Dosage: 1 ML, UNK
     Route: 048
     Dates: start: 20130617
  20. OXYCODONE HYDROCHLORIDE [Concomitant]
     Dosage: 5 MG, PRN
     Dates: start: 20121225
  21. OXYCONTIN [Concomitant]
     Dosage: 30 MG, BID
     Dates: start: 20130212
  22. PARACETAMOL [Concomitant]
     Dosage: 1 G, PRN
     Dates: start: 201206
  23. PARACETAMOL [Concomitant]
     Dosage: UNK
     Dates: start: 20130728
  24. SIMETICONE [Concomitant]
  25. SPIRIVA [Concomitant]
     Dosage: UNK UNK, OD
     Dates: start: 2011
  26. SYMBICORT [Concomitant]
     Dosage: UNK, BID
     Dates: start: 2003

REACTIONS (1)
  - Pneumonia [Fatal]
